FAERS Safety Report 24773073 (Version 2)
Quarter: 2025Q1

REPORT INFORMATION
  Report Type: Spontaneous
  Country: IN (occurrence: None)
  Receive Date: 20241225
  Receipt Date: 20250127
  Transmission Date: 20250408
  Serious: Yes (Life-Threatening)
  Sender: ENCUBE ETHICALS
  Company Number: IN-Encube-001521

PATIENT
  Age: 76 Year
  Sex: Male

DRUGS (2)
  1. MESALAMINE [Suspect]
     Active Substance: MESALAMINE
     Indication: Colitis ulcerative
     Dosage: DELAYED RELEASED TABLETS
     Dates: start: 2022
  2. ACENOCOUMAROL [Suspect]
     Active Substance: ACENOCOUMAROL
     Indication: Anticoagulant therapy

REACTIONS (5)
  - Drug interaction [Unknown]
  - Anaemia [Unknown]
  - Gastrointestinal haemorrhage [Unknown]
  - Anticoagulation drug level above therapeutic [Unknown]
  - Off label use [Unknown]
